FAERS Safety Report 10228242 (Version 1)
Quarter: 2014Q2

REPORT INFORMATION
  Report Type: Spontaneous
  Country: CN (occurrence: CN)
  Receive Date: 20140610
  Receipt Date: 20140610
  Transmission Date: 20141212
  Serious: Yes (Other)
  Sender: FDA-Public Use
  Company Number: CN-ASTRAZENECA-2014SE40246

PATIENT
  Age: 24788 Day
  Sex: Female
  Weight: 56 kg

DRUGS (1)
  1. TICAGRELOR [Suspect]
     Indication: ARTERIOSCLEROSIS
     Route: 048
     Dates: start: 20131104, end: 20131114

REACTIONS (2)
  - Tachypnoea [Recovering/Resolving]
  - Dyspnoea [Recovering/Resolving]
